FAERS Safety Report 10576301 (Version 4)
Quarter: 2015Q1

REPORT INFORMATION
  Report Type: Report from Study
  Country: CA (occurrence: CA)
  Receive Date: 20141111
  Receipt Date: 20150331
  Transmission Date: 20150720
  Serious: Yes (Hospitalization)
  Sender: FDA-Public Use
  Company Number: CA-IPSEN BIOPHARMACEUTICALS, INC.-2014-4809

PATIENT
  Age: 42 Year
  Sex: Female

DRUGS (2)
  1. SOMATULINE AUTOGEL [Suspect]
     Active Substance: LANREOTIDE ACETATE
     Indication: ACROMEGALY
     Dosage: 120 MG
     Route: 058
     Dates: start: 20140805
  2. FIBRITAL [Concomitant]
     Indication: AMENORRHOEA
     Dosage: NOT REPORTED
     Route: 065
     Dates: start: 20140701

REACTIONS (6)
  - Vaginal haemorrhage [Unknown]
  - Pain in jaw [Unknown]
  - Headache [Unknown]
  - Incision site erythema [None]
  - Incision site swelling [None]
  - Injection site discomfort [Unknown]

NARRATIVE: CASE EVENT DATE: 20140807
